FAERS Safety Report 19416209 (Version 1)
Quarter: 2021Q2

REPORT INFORMATION
  Report Type: Report from Study
  Country: CZ (occurrence: CZ)
  Receive Date: 20210614
  Receipt Date: 20210614
  Transmission Date: 20210717
  Serious: Yes (Hospitalization, Other)
  Sender: FDA-Public Use
  Company Number: CZ-TAKEDA-CZ202022079

PATIENT
  Age: 40 Year
  Sex: Male

DRUGS (6)
  1. DANATROL [Concomitant]
     Active Substance: DANAZOL
     Route: 065
  2. ICATIBANT [Suspect]
     Active Substance: ICATIBANT ACETATE
     Indication: HEREDITARY ANGIOEDEMA
     Route: 065
  3. ICATIBANT [Suspect]
     Active Substance: ICATIBANT ACETATE
     Indication: HEREDITARY ANGIOEDEMA
     Route: 065
  4. EUTHYROX N [Concomitant]
     Active Substance: LEVOTHYROXINE SODIUM
     Dosage: UNK
     Route: 065
  5. TRAMYLPA [Concomitant]
     Dosage: UNK
     Route: 065
  6. XEFO RAPID [Concomitant]
     Active Substance: LORNOXICAM
     Dosage: UNK
     Route: 065

REACTIONS (1)
  - Muscle rupture [Recovered/Resolved]

NARRATIVE: CASE EVENT DATE: 20190622
